FAERS Safety Report 7249713-7 (Version None)
Quarter: 2011Q1

REPORT INFORMATION
  Report Type: 
  Country: None (occurrence: None)
  Receive Date: 20110128
  Receipt Date: 20100628
  Transmission Date: 20110831
  Serious: No
  Sender: FDA-Public Use
  Company Number: A0867676A

PATIENT
  Sex: Female

DRUGS (3)
  1. EPIVIR [Suspect]
     Indication: ANTIRETROVIRAL THERAPY
     Route: 065
  2. KALETRA [Suspect]
     Indication: ANTIRETROVIRAL THERAPY
     Route: 065
  3. VIREAD [Suspect]
     Indication: ANTIRETROVIRAL THERAPY
     Route: 065

REACTIONS (3)
  - NEUROPATHY PERIPHERAL [None]
  - PAIN IN EXTREMITY [None]
  - DEPRESSION [None]
